FAERS Safety Report 6356248-2 (Version None)
Quarter: 2009Q3

REPORT INFORMATION
  Report Type: 
  Country: None (occurrence: None)
  Receive Date: 20090914
  Receipt Date: 20090914
  Transmission Date: 20100115
  Serious: Yes (Other)
  Sender: FDA-Public Use
  Company Number: None

PATIENT
  Age: 51 Year
  Sex: Female
  Weight: 71.2147 kg

DRUGS (2)
  1. FENTANYL [Suspect]
     Indication: COLONOSCOPY
     Dosage: ONCE IV
     Route: 042
     Dates: start: 20090825, end: 20090825
  2. VERSED [Concomitant]

REACTIONS (3)
  - DEPRESSION [None]
  - HOMICIDAL IDEATION [None]
  - MOOD ALTERED [None]
